FAERS Safety Report 14779042 (Version 3)
Quarter: 2021Q1

REPORT INFORMATION
  Report Type: Spontaneous
  Country: US (occurrence: US)
  Receive Date: 20180419
  Receipt Date: 20210122
  Transmission Date: 20210419
  Serious: Yes (Hospitalization, Disabling, Other)
  Sender: FDA-Public Use
  Company Number: US-PFIZER INC-2018154159

PATIENT
  Age: 16 Year
  Sex: Male

DRUGS (1)
  1. FENTANYL CITRATE. [Suspect]
     Active Substance: FENTANYL CITRATE
     Dosage: SNORTING A GRAY POWDER
     Route: 045

REACTIONS (2)
  - Deafness neurosensory [Unknown]
  - Intentional overdose [Unknown]
